FAERS Safety Report 10475066 (Version 1)
Quarter: 2014Q3

REPORT INFORMATION
  Report Type: Spontaneous
  Country: US (occurrence: None)
  Receive Date: 20140924
  Receipt Date: 20140924
  Transmission Date: 20150326
  Serious: Yes (Life-Threatening, Disabling, Other)
  Sender: FDA-Public Use
  Company Number: None

PATIENT
  Age: 46 Year
  Sex: Male
  Weight: 64.86 kg

DRUGS (1)
  1. CIPRO [Suspect]
     Active Substance: CIPROFLOXACIN HYDROCHLORIDE
     Indication: PRODUCT USED FOR UNKNOWN INDICATION
     Dosage: TWICE DAILY, TAKEN BY MOUTH.  ??120
     Route: 048

REACTIONS (6)
  - Product quality issue [None]
  - Gait disturbance [None]
  - Tendon rupture [None]
  - Eye disorder [None]
  - Haematochezia [None]
  - Swelling face [None]
